FAERS Safety Report 9711399 (Version 1)
Quarter: 2013Q4

REPORT INFORMATION
  Report Type: Spontaneous
  Country: US (occurrence: US)
  Receive Date: 20131126
  Receipt Date: 20131126
  Transmission Date: 20140711
  Serious: No
  Sender: FDA-Public Use
  Company Number: US-BRISTOL-MYERS SQUIBB COMPANY-19348499

PATIENT
  Age: 78 Year
  Sex: Female
  Weight: 76.19 kg

DRUGS (4)
  1. BYETTA PEN DISPOSABLE [Suspect]
     Indication: TYPE 2 DIABETES MELLITUS
     Route: 058
     Dates: start: 201308
  2. METFORMIN HCL [Suspect]
     Indication: TYPE 2 DIABETES MELLITUS
  3. NOVOLOG [Suspect]
     Indication: TYPE 2 DIABETES MELLITUS
     Dosage: 70/30 FLEX PEN (NOVO NORDISK)CURRENT DOSE: INCREASED TO 32UNITS IN THE MORN AND 24UNITS IN THE EVE
  4. GLYBURIDE [Suspect]
     Indication: TYPE 2 DIABETES MELLITUS

REACTIONS (4)
  - Blood glucose increased [Not Recovered/Not Resolved]
  - Fungal infection [Not Recovered/Not Resolved]
  - Visual acuity reduced [Not Recovered/Not Resolved]
  - Weight decreased [Not Recovered/Not Resolved]
